FAERS Safety Report 6961725-7 (Version None)
Quarter: 2010Q3

REPORT INFORMATION
  Report Type: 
  Country: None (occurrence: None)
  Receive Date: 20100901
  Receipt Date: 20100813
  Transmission Date: 20110219
  Serious: Yes (Death, Hospitalization, Other)
  Sender: FDA-Public Use
  Company Number: PHEH2006US03583

PATIENT
  Sex: Female
  Weight: 81.632 kg

DRUGS (38)
  1. ZOMETA [Suspect]
     Indication: MULTIPLE MYELOMA
     Dosage: 4 MG, Q 4 WEEKS
     Route: 042
     Dates: start: 20031001, end: 20050304
  2. AREDIA [Suspect]
  3. HUMALOG [Concomitant]
     Indication: DIABETES MELLITUS
     Dosage: 70 U QAM, 45 U QPM
     Route: 058
  4. HUMALOG [Concomitant]
     Dosage: UNK, DAILY SLIDING SCLE
     Route: 058
  5. MORPHINE [Concomitant]
  6. OMEPRAZOLE [Concomitant]
     Dosage: 20 MG, QD
     Route: 048
  7. DICLOFENAC SODIUM [Concomitant]
     Dosage: 75 MG, BID
     Route: 048
  8. LIPITOR [Concomitant]
     Dosage: UNK, UNK
  9. DECADRON [Concomitant]
     Indication: BONE MARROW TRANSPLANT
     Dosage: UNK
  10. VELCADE [Concomitant]
     Dosage: UNK
     Dates: start: 20050927, end: 20060127
  11. COUMADIN [Concomitant]
  12. FENTANYL CITRATE [Concomitant]
  13. ZOFRAN [Concomitant]
  14. OXYCONTIN [Concomitant]
  15. OXYCODONE [Concomitant]
  16. LORTAB [Concomitant]
  17. AMBIEN [Concomitant]
  18. CALCIUM [Concomitant]
  19. DURAGESIC-100 [Concomitant]
  20. ROXANOL [Concomitant]
  21. ATIVAN [Concomitant]
  22. DIPHENHYDRAMINE HCL [Concomitant]
  23. HEPARIN [Concomitant]
  24. BENADRYL ^PFIZER WARNER-LAMBERT^ [Concomitant]
  25. SENOKOT                                 /UNK/ [Concomitant]
  26. REGLAN [Concomitant]
  27. AMOXICILLIN [Concomitant]
  28. SALINE [Concomitant]
  29. AMPICILLIN SODIUM [Concomitant]
  30. CEFAZOLIN [Concomitant]
  31. CEFTAZIDIME [Concomitant]
  32. CEFEPIME [Concomitant]
  33. IMIPENEM [Concomitant]
  34. AZTREONAM [Concomitant]
  35. GENTAMICIN [Concomitant]
  36. TOBRAMYCIN [Concomitant]
  37. CIPROFLOXACIN [Concomitant]
  38. TRIMETHOPRIM [Concomitant]

REACTIONS (73)
  - ACTINOMYCOSIS [None]
  - ANXIETY [None]
  - ARTERIOSCLEROSIS CORONARY ARTERY [None]
  - ASTHENIA [None]
  - ATELECTASIS [None]
  - BONE DEBRIDEMENT [None]
  - BONE DISORDER [None]
  - BONE LESION [None]
  - BREATH ODOUR [None]
  - CELLULITIS [None]
  - CENTRAL VENOUS CATHETERISATION [None]
  - CHOLECYSTECTOMY [None]
  - CHOLECYSTITIS [None]
  - CHOLELITHIASIS [None]
  - DECREASED APPETITE [None]
  - DEHYDRATION [None]
  - DENTAL CARIES [None]
  - ENDODONTIC PROCEDURE [None]
  - ERYTHEMA [None]
  - EXOSTOSIS [None]
  - FALL [None]
  - GAIT DISTURBANCE [None]
  - HEPATIC LESION [None]
  - HERPES ZOSTER [None]
  - HIATUS HERNIA [None]
  - HYPERTROPHY [None]
  - HYPOAESTHESIA ORAL [None]
  - HYPONATRAEMIA [None]
  - HYPOPHAGIA [None]
  - HYPOXIA [None]
  - IMPAIRED HEALING [None]
  - INFLAMMATION [None]
  - INJURY [None]
  - INSOMNIA [None]
  - LOOSE TOOTH [None]
  - LYMPHADENOPATHY [None]
  - MASS [None]
  - MASTICATION DISORDER [None]
  - MOUTH ULCERATION [None]
  - MUCOSAL INFLAMMATION [None]
  - MULTIPLE MYELOMA [None]
  - MUSCULOSKELETAL PAIN [None]
  - NAUSEA [None]
  - NECROSIS [None]
  - NEURALGIA [None]
  - OEDEMA [None]
  - ORAL CANDIDIASIS [None]
  - ORAL DISCOMFORT [None]
  - ORAL INFECTION [None]
  - ORAL PAIN [None]
  - OSTEITIS [None]
  - OSTEOMYELITIS [None]
  - OSTEONECROSIS OF JAW [None]
  - OVARIAN CYST [None]
  - PAIN [None]
  - PAIN IN JAW [None]
  - PATHOLOGICAL FRACTURE [None]
  - PHYSIOTHERAPY [None]
  - PLASMACYTOMA [None]
  - PNEUMONIA [None]
  - PURULENCE [None]
  - PYREXIA [None]
  - RADIOTHERAPY [None]
  - SENSATION OF PRESSURE [None]
  - SENSORY LOSS [None]
  - SINUS POLYP [None]
  - STEM CELL TRANSPLANT [None]
  - SWELLING FACE [None]
  - TOOTH EXTRACTION [None]
  - TOOTH INFECTION [None]
  - VASCULAR CALCIFICATION [None]
  - VOMITING [None]
  - WEIGHT DECREASED [None]
